FAERS Safety Report 10009386 (Version 2)
Quarter: 2014Q1

REPORT INFORMATION
  Report Type: Spontaneous
  Country: US (occurrence: US)
  Receive Date: 20140313
  Receipt Date: 20140313
  Transmission Date: 20141002
  Serious: Yes (Other)
  Sender: FDA-Public Use
  Company Number: US-INCYTE CORPORATION-2012IN000920

PATIENT
  Age: 71 Year
  Sex: Male
  Weight: 92.97 kg

DRUGS (2)
  1. JAKAFI [Suspect]
     Indication: MYELOFIBROSIS
     Dosage: 20 MG, BID
     Route: 048
     Dates: start: 20120327, end: 2012
  2. JAKAFI [Suspect]
     Dosage: 20 MG, QD
     Route: 048
     Dates: start: 2012

REACTIONS (4)
  - Anaemia [Unknown]
  - Hypoglycaemia [Unknown]
  - Oedema [Unknown]
  - Dizziness [Unknown]
